FAERS Safety Report 7508459-8 (Version None)
Quarter: 2011Q2

REPORT INFORMATION
  Report Type: 
  Country: None (occurrence: None)
  Receive Date: 20110421
  Receipt Date: 20110414
  Transmission Date: 20111010
  Serious: Yes (Hospitalization)
  Sender: FDA-Public Use
  Company Number: SPV1-2010-00060

PATIENT
  Age: 9 Year
  Sex: Male
  Weight: 30 kg

DRUGS (3)
  1. BENADRYL CHILDRENS (DIPHENHYDRAMINE HYDROCHLORIDE) [Concomitant]
  2. DDAVP [Concomitant]
  3. VYVANSE [Suspect]
     Indication: ATTENTION DEFICIT/HYPERACTIVITY DISORDER
     Dosage: 50 MG, 1X/DAY: QD, ORAL
     Route: 048
     Dates: start: 20080701, end: 20100114

REACTIONS (4)
  - GASTROINTESTINAL VIRAL INFECTION [None]
  - STEVENS-JOHNSON SYNDROME [None]
  - HYPOTENSION [None]
  - PYREXIA [None]
